FAERS Safety Report 13944432 (Version 1)
Quarter: 2017Q3

REPORT INFORMATION
  Report Type: Spontaneous
  Country: US (occurrence: US)
  Receive Date: 20170907
  Receipt Date: 20170907
  Transmission Date: 20171128
  Serious: No
  Sender: FDA-Public Use
  Company Number: US-ROCHE-1324105

PATIENT
  Sex: Female
  Weight: 76.73 kg

DRUGS (1)
  1. RITUXAN [Suspect]
     Active Substance: RITUXIMAB
     Indication: WALDENSTROM^S MACROGLOBULINAEMIA
     Route: 042
     Dates: start: 20131114, end: 20131212

REACTIONS (2)
  - Blood bilirubin abnormal [Unknown]
  - Liver function test abnormal [Unknown]
